FAERS Safety Report 14833587 (Version 1)
Quarter: 2018Q2

REPORT INFORMATION
  Report Type: Spontaneous
  Country: US (occurrence: US)
  Receive Date: 20180501
  Receipt Date: 20180501
  Transmission Date: 20180711
  Serious: Yes (Other)
  Sender: FDA-Public Use
  Company Number: US-ROCHE-1916892

PATIENT
  Sex: Female

DRUGS (9)
  1. LUCENTIS [Suspect]
     Active Substance: RANIBIZUMAB
     Indication: MACULAR DEGENERATION
     Dosage: HAD 3 TREATMENTS
     Route: 031
  2. EYLEA [Suspect]
     Active Substance: AFLIBERCEPT
     Dosage: 2 MG/0.05 ML, LEFT EYE
     Route: 050
     Dates: start: 20160413, end: 20160413
  3. PRED FORTE [Concomitant]
     Active Substance: PREDNISOLONE ACETATE
  4. EYLEA [Suspect]
     Active Substance: AFLIBERCEPT
     Indication: NEOVASCULAR AGE-RELATED MACULAR DEGENERATION
     Dosage: 2 MG/0.05 ML, LEFT EYE
     Route: 050
     Dates: start: 2015, end: 2015
  5. BESIVANCE [Concomitant]
     Active Substance: BESIFLOXACIN
  6. EYLEA [Suspect]
     Active Substance: AFLIBERCEPT
     Dosage: 2 MG/0.05 ML, RIGHT EYE
     Route: 050
     Dates: start: 201701, end: 201701
  7. EYLEA [Suspect]
     Active Substance: AFLIBERCEPT
     Dosage: 2 MG/0.05 ML, LEFT EYE
     Route: 050
     Dates: start: 20170206, end: 20170206
  8. EYLEA [Suspect]
     Active Substance: AFLIBERCEPT
     Dosage: 2 MG/0.05 ML, EVERY 4-5 WEEKS
     Route: 050
     Dates: start: 20170306, end: 20170306
  9. AVASTIN [Suspect]
     Active Substance: BEVACIZUMAB
     Indication: MACULAR DEGENERATION
     Dosage: 10 YEARS
     Route: 031

REACTIONS (15)
  - Visual impairment [Unknown]
  - Discomfort [Unknown]
  - Vision blurred [Recovering/Resolving]
  - Herpes zoster [Recovered/Resolved]
  - Endophthalmitis [Unknown]
  - Photophobia [Unknown]
  - Eye pain [Recovered/Resolved]
  - Viral infection [Recovered/Resolved]
  - Photopsia [Unknown]
  - Impaired driving ability [Recovered/Resolved]
  - Visual impairment [Recovered/Resolved]
  - Nasopharyngitis [Recovering/Resolving]
  - Dry eye [Unknown]
  - Hypersensitivity [Unknown]
  - Cataract [Recovered/Resolved]

NARRATIVE: CASE EVENT DATE: 201604
